FAERS Safety Report 18528555 (Version 1)
Quarter: 2020Q4

REPORT INFORMATION
  Report Type: Spontaneous
  Country: GB (occurrence: GB)
  Receive Date: 20201120
  Receipt Date: 20201120
  Transmission Date: 20210114
  Serious: Yes (Hospitalization, Other)
  Sender: FDA-Public Use
  Company Number: GB-GILEAD-2020-0505129

PATIENT
  Age: 70 Year
  Sex: Male

DRUGS (10)
  1. REMDESIVIR. [Suspect]
     Active Substance: REMDESIVIR
     Indication: COVID-19 PNEUMONIA
     Dosage: 200 MG, ONCE
     Route: 042
     Dates: start: 20201031, end: 20201031
  2. DEXAMETHASONE. [Suspect]
     Active Substance: DEXAMETHASONE
     Indication: COVID-19 PNEUMONIA
     Dosage: 6 MG, QD
     Route: 048
     Dates: start: 20201031, end: 20201101
  3. TINZAPARIN [Concomitant]
     Active Substance: TINZAPARIN
  4. REMDESIVIR. [Suspect]
     Active Substance: REMDESIVIR
     Dosage: 100 MG, QD
     Route: 042
     Dates: start: 20201101, end: 20201104
  5. DOXYCYCLINE. [Concomitant]
     Active Substance: DOXYCYCLINE
  6. RAMIPRIL. [Concomitant]
     Active Substance: RAMIPRIL
  7. LACTULOSE. [Concomitant]
     Active Substance: LACTULOSE
  8. PRAVASTATIN. [Concomitant]
     Active Substance: PRAVASTATIN
  9. CEFTRIAXONE. [Concomitant]
     Active Substance: CEFTRIAXONE
  10. DIHYDROCODEINE [Concomitant]
     Active Substance: DIHYDROCODEINE

REACTIONS (2)
  - Upper gastrointestinal haemorrhage [Recovering/Resolving]
  - Haematemesis [Unknown]

NARRATIVE: CASE EVENT DATE: 20201101
